FAERS Safety Report 22065123 (Version 3)
Quarter: 2023Q2

REPORT INFORMATION
  Report Type: Spontaneous
  Country: US (occurrence: US)
  Receive Date: 20230306
  Receipt Date: 20230516
  Transmission Date: 20230721
  Serious: Yes (Other)
  Sender: FDA-Public Use
  Company Number: US-Calliditas-2023CAL00159

PATIENT
  Age: 54 Year
  Sex: Male
  Weight: 88.45 kg

DRUGS (2)
  1. TARPEYO [Suspect]
     Active Substance: BUDESONIDE
     Indication: IgA nephropathy
     Dosage: 16MG (4 MG CAPSULES) ONCE DAILY
     Route: 048
     Dates: start: 20230203, end: 20230306
  2. LOSARTAN [Concomitant]
     Active Substance: LOSARTAN

REACTIONS (3)
  - Accidental underdose [Recovered/Resolved]
  - Dialysis [Not Recovered/Not Resolved]
  - End stage renal disease [Not Recovered/Not Resolved]

NARRATIVE: CASE EVENT DATE: 20220101
